FAERS Safety Report 21558925 (Version 1)
Quarter: 2022Q4

REPORT INFORMATION
  Report Type: Spontaneous
  Country: DK (occurrence: DK)
  Receive Date: 20221107
  Receipt Date: 20221107
  Transmission Date: 20230112
  Serious: No
  Sender: FDA-Public Use
  Company Number: DK-ALKEM LABORATORIES LIMITED-DK-ALKEM-2022-08086

PATIENT

DRUGS (1)
  1. COLESEVELAM HYDROCHLORIDE [Suspect]
     Active Substance: COLESEVELAM HYDROCHLORIDE
     Indication: Bile acid malabsorption
     Dosage: 625 MILLIGRAM, BID (THREE CAPSULES OF 625 MG TWICE DAILY)
     Route: 065

REACTIONS (1)
  - Nausea [Unknown]
